FAERS Safety Report 11285285 (Version 1)
Quarter: 2015Q3

REPORT INFORMATION
  Report Type: Report from Study
  Country: IL (occurrence: IL)
  Receive Date: 20150720
  Receipt Date: 20150720
  Transmission Date: 20151125
  Serious: Yes (Death)
  Sender: FDA-Public Use
  Company Number: PHHY2015IL086510

PATIENT
  Age: 57 Year
  Sex: Male
  Weight: 50 kg

DRUGS (1)
  1. SANDOSTATIN LAR DEPOT [Suspect]
     Active Substance: OCTREOTIDE ACETATE
     Indication: PANCREATIC NEUROENDOCRINE TUMOUR
     Dosage: 30 MG, QMO(EVERY 4 WEEKS)
     Route: 030
     Dates: start: 20150329

REACTIONS (1)
  - Death [Fatal]

NARRATIVE: CASE EVENT DATE: 20150717
